FAERS Safety Report 11758428 (Version 1)
Quarter: 2015Q4

REPORT INFORMATION
  Report Type: Spontaneous
  Country: GB (occurrence: GB)
  Receive Date: 20151120
  Receipt Date: 20151120
  Transmission Date: 20160304
  Serious: Yes (Hospitalization)
  Sender: FDA-Public Use
  Company Number: GB-TEVA-609116ACC

PATIENT
  Age: 61 Year
  Sex: Female

DRUGS (2)
  1. WARFARIN [Suspect]
     Active Substance: WARFARIN
  2. ENBREL [Suspect]
     Active Substance: ETANERCEPT

REACTIONS (6)
  - Blood iron decreased [Unknown]
  - Heart rate increased [Unknown]
  - Heart valve incompetence [Unknown]
  - Pain in extremity [Unknown]
  - Pyrexia [Unknown]
  - Dyspnoea [Unknown]
